FAERS Safety Report 12103105 (Version 3)
Quarter: 2016Q2

REPORT INFORMATION
  Report Type: Other
  Country: GB (occurrence: GB)
  Receive Date: 20160222
  Receipt Date: 20160415
  Transmission Date: 20160815
  Serious: Yes (Other)
  Sender: FDA-Public Use
  Company Number: GB-MYLANLABS-2016M1006254

PATIENT

DRUGS (6)
  1. GAVISCON                           /01279101/ [Concomitant]
     Dosage: UNK
  2. SALMETEROL [Concomitant]
     Active Substance: SALMETEROL
     Dosage: UNK
  3. PARACETAMOL [Concomitant]
     Active Substance: ACETAMINOPHEN
     Indication: NEPHROLITHIASIS
     Dosage: 50 MG, TID
     Dates: start: 20080305
  4. SALBUTAMOL [Concomitant]
     Active Substance: ALBUTEROL
     Dosage: UNK
  5. TRAMADOL. [Suspect]
     Active Substance: TRAMADOL
     Indication: RENAL COLIC
     Dosage: 50 MG, TID
     Route: 048
     Dates: start: 20080305
  6. DICLOFENAC [Concomitant]
     Active Substance: DICLOFENAC
     Dosage: UNK

REACTIONS (6)
  - Muscle twitching [Unknown]
  - Tremor [Unknown]
  - Abdominal pain [Unknown]
  - Dyskinesia [Unknown]
  - Movement disorder [Unknown]
  - Dysphemia [Unknown]
